FAERS Safety Report 23937567 (Version 3)
Quarter: 2024Q4

REPORT INFORMATION
  Report Type: Spontaneous
  Country: DE (occurrence: DE)
  Receive Date: 20240604
  Receipt Date: 20241118
  Transmission Date: 20250115
  Serious: No
  Sender: REGENERON
  Company Number: DE-BAYER-2024A079704

PATIENT
  Age: 82 Year
  Sex: Male

DRUGS (5)
  1. EYLEA HD [Suspect]
     Active Substance: AFLIBERCEPT
     Indication: Macular oedema
     Dosage: FOR THE RIGHT EYE FOR 4 WEEKS, 114.3  MG/ML, SOLUTION FOR INJECTION
     Dates: start: 202405
  2. EYLEA HD [Suspect]
     Active Substance: AFLIBERCEPT
     Indication: Macular telangiectasia
  3. EYLEA [Suspect]
     Active Substance: AFLIBERCEPT
     Indication: Macular oedema
     Dosage: FOR THE LEFT EYE FOR 1-2 YEARS, SOLUTION FOR INJECTION, 40 MG/ML
  4. EYLEA [Suspect]
     Active Substance: AFLIBERCEPT
     Indication: Macular telangiectasia
  5. CORTISONE ACETATE [Concomitant]
     Active Substance: CORTISONE ACETATE
     Indication: Rheumatic disorder
     Dosage: PATIENT HAS BEEN TAKING CORTISONE FOR 4-5 MONTHS

REACTIONS (1)
  - Product use in unapproved indication [Unknown]
